FAERS Safety Report 17533375 (Version 1)
Quarter: 2020Q1

REPORT INFORMATION
  Report Type: Spontaneous
  Country: DE (occurrence: DE)
  Receive Date: 20200312
  Receipt Date: 20200312
  Transmission Date: 20200409
  Serious: Yes (Other)
  Sender: FDA-Public Use
  Company Number: DE-ASTRAZENECA-2020SE35283

PATIENT
  Sex: Male

DRUGS (7)
  1. L-TYROXIN [Concomitant]
  2. XELEVIA [Concomitant]
     Active Substance: SITAGLIPTIN PHOSPHATE
  3. METFORMIN [Concomitant]
     Active Substance: METFORMIN HYDROCHLORIDE
  4. VITAMIN D [Concomitant]
     Active Substance: VITAMIN D NOS
  5. VENLAFAXIN [Concomitant]
     Active Substance: VENLAFAXINE HYDROCHLORIDE
  6. FORXIGA [Suspect]
     Active Substance: DAPAGLIFLOZIN
     Route: 048
  7. ATORVASTATIN [Concomitant]
     Active Substance: ATORVASTATIN

REACTIONS (1)
  - Urine analysis abnormal [Unknown]
